FAERS Safety Report 9737032 (Version 3)
Quarter: 2015Q3

REPORT INFORMATION
  Report Type: Spontaneous
  Country: US (occurrence: US)
  Receive Date: 20131206
  Receipt Date: 20150804
  Transmission Date: 20151125
  Serious: Yes (Other)
  Sender: FDA-Public Use
  Company Number: US-GILEAD-2009-0024175

PATIENT
  Age: 61 Year
  Sex: Male

DRUGS (14)
  1. LETAIRIS [Suspect]
     Active Substance: AMBRISENTAN
     Indication: PULMONARY ARTERIAL HYPERTENSION
  2. KLOR-CON [Concomitant]
     Active Substance: POTASSIUM CHLORIDE
  3. ASPIRIN. [Concomitant]
     Active Substance: ASPIRIN
  4. IRON [Concomitant]
     Active Substance: IRON
  5. CRESTOR [Concomitant]
     Active Substance: ROSUVASTATIN CALCIUM
  6. SPIRIVA [Concomitant]
     Active Substance: TIOTROPIUM BROMIDE MONOHYDRATE
  7. LEVOTHYROXINE. [Concomitant]
     Active Substance: LEVOTHYROXINE
  8. FUROSEMIDE. [Concomitant]
     Active Substance: FUROSEMIDE
  9. ALLOPURINOL. [Concomitant]
     Active Substance: ALLOPURINOL
  10. MECLIZINE [Concomitant]
     Active Substance: MECLIZINE\MECLIZINE HYDROCHLORIDE
  11. NEXIUM [Concomitant]
     Active Substance: ESOMEPRAZOLE MAGNESIUM
  12. ALTACE [Concomitant]
     Active Substance: RAMIPRIL
  13. PLAVIX [Concomitant]
     Active Substance: CLOPIDOGREL BISULFATE
  14. COLCHICINE. [Concomitant]
     Active Substance: COLCHICINE

REACTIONS (3)
  - Drug ineffective [Unknown]
  - Fall [Unknown]
  - Dizziness [Unknown]

NARRATIVE: CASE EVENT DATE: 2008
